FAERS Safety Report 24138589 (Version 2)
Quarter: 2024Q4

REPORT INFORMATION
  Report Type: Spontaneous
  Country: US (occurrence: US)
  Receive Date: 20240725
  Receipt Date: 20241010
  Transmission Date: 20250114
  Serious: Yes (Other)
  Sender: BLUEPRINT MEDICINES
  Company Number: US-Blueprint Medicines Corporation-4242

PATIENT
  Sex: Male

DRUGS (3)
  1. AYVAKIT [Suspect]
     Active Substance: AVAPRITINIB
     Indication: Systemic mastocytosis
     Route: 065
  2. TRAZODONE [Concomitant]
     Active Substance: TRAZODONE HYDROCHLORIDE
     Indication: Product used for unknown indication
     Route: 065
  3. QUVIVIQ [Concomitant]
     Active Substance: DARIDOREXANT
     Indication: Product used for unknown indication
     Route: 065

REACTIONS (12)
  - Loss of consciousness [Unknown]
  - Faecaloma [Unknown]
  - Suicidal ideation [Unknown]
  - Papilloma viral infection [Unknown]
  - Malaise [Unknown]
  - Memory impairment [Unknown]
  - Depression [Unknown]
  - Anxiety [Unknown]
  - Mania [Unknown]
  - Gastrointestinal disorder [Unknown]
  - Polyp [Unknown]
  - Inappropriate schedule of product administration [Unknown]
